FAERS Safety Report 7109203-9 (Version None)
Quarter: 2010Q4

REPORT INFORMATION
  Report Type: 
  Country: None (occurrence: None)
  Receive Date: 20101117
  Receipt Date: 20101104
  Transmission Date: 20110411
  Serious: Yes (Life-Threatening)
  Sender: FDA-Public Use
  Company Number: JP-ELI_LILLY_AND_COMPANY-JP201010006534

PATIENT
  Sex: Female

DRUGS (3)
  1. CYMBALTA [Suspect]
     Indication: DEPRESSED MOOD
     Dosage: 40 MG, DAILY (1/D)
     Route: 048
     Dates: start: 20100913, end: 20101021
  2. EURODIN [Concomitant]
     Indication: DEPRESSED MOOD
     Dosage: 2 MG, DAILY (1/D)
     Route: 048
     Dates: start: 20100917, end: 20101021
  3. RIFADIN [Concomitant]
     Indication: DEVICE RELATED INFECTION
     Dosage: 75 MG, 2/D
     Route: 048
     Dates: start: 20101016, end: 20101021

REACTIONS (3)
  - ALTERED STATE OF CONSCIOUSNESS [None]
  - HEPATIC FUNCTION ABNORMAL [None]
  - METABOLIC ACIDOSIS [None]
